FAERS Safety Report 11325913 (Version 1)
Quarter: 2015Q3

REPORT INFORMATION
  Report Type: Spontaneous
  Country: CN (occurrence: CN)
  Receive Date: 20150731
  Receipt Date: 20150731
  Transmission Date: 20151125
  Serious: Yes (Hospitalization)
  Sender: FDA-Public Use
  Company Number: CN-ACCORD-032645

PATIENT
  Age: 8 Year
  Sex: Male
  Weight: 51.8 kg

DRUGS (3)
  1. VALPROIC ACID. [Suspect]
     Active Substance: VALPROIC ACID
     Indication: EPILEPSY
  2. CLONAZEPAM. [Suspect]
     Active Substance: CLONAZEPAM
     Indication: EPILEPSY
     Dosage: 0.25 MG IN THE MORNING AND 0.125 MG IN THE EVENING
     Route: 048
  3. LAMOTRIGINE. [Suspect]
     Active Substance: LAMOTRIGINE
     Indication: EPILEPSY

REACTIONS (6)
  - Obliterative bronchiolitis [Unknown]
  - Muscular weakness [Unknown]
  - Tracheal disorder [Unknown]
  - Pneumonia [Unknown]
  - Respiratory muscle weakness [Unknown]
  - Eye swelling [Unknown]
